FAERS Safety Report 8824469 (Version 1)
Quarter: 2012Q4

REPORT INFORMATION
  Report Type: 
  Country: US (occurrence: US)
  Receive Date: 20121004
  Receipt Date: 20121004
  Transmission Date: 20130627
  Serious: No
  Sender: FDA-Public Use
  Company Number: US-VIIV HEALTHCARE LIMITED-A0979515A

PATIENT

DRUGS (2)
  1. SELZENTRY [Suspect]
     Indication: HIV INFECTION
     Route: 048
  2. UNSPECIFIED INGREDIENT [Suspect]

REACTIONS (1)
  - Tunnel vision [Recovered/Resolved]
